FAERS Safety Report 10150150 (Version 1)
Quarter: 2014Q2

REPORT INFORMATION
  Report Type: Spontaneous
  Country: IT (occurrence: IT)
  Receive Date: 20140502
  Receipt Date: 20140502
  Transmission Date: 20141212
  Serious: Yes (Hospitalization)
  Sender: FDA-Public Use
  Company Number: IT-GLAXOSMITHKLINE-B0647085A

PATIENT
  Age: 57 Year
  Sex: Female

DRUGS (5)
  1. ZOVIRAX [Suspect]
     Indication: BLEPHARITIS
     Dosage: 5UD PER DAY
     Route: 047
     Dates: start: 20100314, end: 20100326
  2. FAMVIR [Suspect]
     Indication: BLEPHARITIS
     Dosage: 1G PER DAY
     Route: 048
     Dates: start: 20100314, end: 20100326
  3. AULIN (NIMESULIDE) [Suspect]
     Indication: DERMATITIS
     Dosage: 200MG PER DAY
     Route: 048
     Dates: start: 20100325, end: 20100326
  4. MULTIVITAMINS + SUPPLEMENTS [Concomitant]
     Route: 065
     Dates: start: 20100325
  5. BISOPROLOL [Concomitant]
     Route: 065
     Dates: start: 20090326, end: 20100326

REACTIONS (4)
  - Urticaria [Recovered/Resolved]
  - Pruritus [Recovered/Resolved]
  - Dizziness [Recovered/Resolved]
  - Abdominal pain upper [Recovered/Resolved]
